FAERS Safety Report 6377495-X (Version None)
Quarter: 2009Q3

REPORT INFORMATION
  Report Type: 
  Country: None (occurrence: None)
  Receive Date: 20090923
  Receipt Date: 20090923
  Transmission Date: 20100115
  Serious: Yes (Hospitalization)
  Sender: FDA-Public Use
  Company Number: None

PATIENT
  Age: 37 Year
  Sex: Female
  Weight: 120.4 kg

DRUGS (3)
  1. METHOTREXATE 10MG [Suspect]
     Indication: RHEUMATOID ARTHRITIS
     Dosage: 10MG PO QD
     Route: 048
     Dates: start: 20090805, end: 20090812
  2. PREDNISONE TAB [Concomitant]
  3. FOLIC ACID [Concomitant]

REACTIONS (4)
  - ERYTHEMA [None]
  - INAPPROPRIATE SCHEDULE OF DRUG ADMINISTRATION [None]
  - OEDEMA PERIPHERAL [None]
  - OVERDOSE [None]
